FAERS Safety Report 6137956-5 (Version None)
Quarter: 2009Q1

REPORT INFORMATION
  Report Type: 
  Country: None (occurrence: None)
  Receive Date: 20090331
  Receipt Date: 20090324
  Transmission Date: 20090719
  Serious: Yes (Hospitalization, Other)
  Sender: FDA-Public Use
  Company Number: ES-PFIZER INC-2009177568

PATIENT

DRUGS (3)
  1. CARDURA [Suspect]
     Dosage: 2 MG, UNK
     Route: 048
     Dates: start: 20080701, end: 20080807
  2. AMLODIPINE BESILATE [Concomitant]
     Indication: HYPERTENSION
     Dosage: 10 MG, 1X/DAY
     Route: 048
     Dates: start: 20080701, end: 20080807
  3. FUROSEMIDE [Concomitant]
     Indication: HYPERTENSION
     Dosage: 80 MG, 1X/DAY
     Route: 048
     Dates: start: 20080701

REACTIONS (1)
  - CARDIAC FAILURE ACUTE [None]
